FAERS Safety Report 11170173 (Version 1)
Quarter: 2015Q2

REPORT INFORMATION
  Report Type: Spontaneous
  Country: US (occurrence: US)
  Receive Date: 20150608
  Receipt Date: 20150608
  Transmission Date: 20150821
  Serious: No
  Sender: FDA-Public Use
  Company Number: US-ASTRAZENECA-2015SE44096

PATIENT
  Sex: Male
  Weight: 145.2 kg

DRUGS (7)
  1. SEROQUEL [Suspect]
     Active Substance: QUETIAPINE FUMARATE
     Indication: BIPOLAR DISORDER
     Route: 048
     Dates: start: 2008
  2. MULTIVITAMINS [Concomitant]
     Active Substance: VITAMINS
  3. ST JOHNS WORT [Concomitant]
     Active Substance: ST. JOHN^S WORT
  4. B12 SUBLINGUAL [Concomitant]
  5. SEROQUEL [Suspect]
     Active Substance: QUETIAPINE FUMARATE
     Indication: BIPOLAR DISORDER
     Route: 048
  6. LISINOPRIL / HCTZ [Suspect]
     Active Substance: HYDROCHLOROTHIAZIDE\LISINOPRIL
     Indication: BLOOD PRESSURE
     Dosage: DAILY
     Route: 048
  7. TUMERIC [Concomitant]

REACTIONS (5)
  - Sedation [Not Recovered/Not Resolved]
  - Tension [Not Recovered/Not Resolved]
  - Somnolence [Not Recovered/Not Resolved]
  - Intentional product misuse [Not Recovered/Not Resolved]
  - Psychomotor skills impaired [Not Recovered/Not Resolved]
